FAERS Safety Report 10206814 (Version 4)
Quarter: 2014Q3

REPORT INFORMATION
  Report Type: Spontaneous
  Country: CA (occurrence: CA)
  Receive Date: 20140530
  Receipt Date: 20140821
  Transmission Date: 20150326
  Serious: Yes (Other)
  Sender: FDA-Public Use
  Company Number: CHPA2014CA007209

PATIENT
  Age: 58 Year
  Sex: Male

DRUGS (5)
  1. THRIVE GUM UNKNOWN [Suspect]
     Active Substance: NICOTINE
     Indication: SMOKING CESSATION THERAPY
     Dosage: UNK
     Route: 048
  2. HABITROL [Suspect]
     Active Substance: NICOTINE
     Indication: SMOKING CESSATION THERAPY
     Dosage: 1 DF, QD
     Route: 062
     Dates: start: 2012
  3. HABITROL [Suspect]
     Active Substance: NICOTINE
     Dosage: 1 DF, QD
     Route: 062
  4. HABITROL [Suspect]
     Active Substance: NICOTINE
     Dosage: 1 DF, QD
     Route: 062
  5. THRIVE GUM UNKNOWN [Suspect]
     Active Substance: NICOTINE
     Dosage: UNK
     Route: 048

REACTIONS (11)
  - Headache [Not Recovered/Not Resolved]
  - Incorrect drug administration duration [Unknown]
  - Night sweats [Recovered/Resolved]
  - Nicotine dependence [Recovered/Resolved]
  - Dysgeusia [Recovered/Resolved]
  - Nightmare [Recovered/Resolved]
  - Sneezing [Not Recovered/Not Resolved]
  - Expired product administered [Unknown]
  - Back pain [Not Recovered/Not Resolved]
  - Blood testosterone decreased [Not Recovered/Not Resolved]
  - Drug ineffective [Unknown]

NARRATIVE: CASE EVENT DATE: 2012
